FAERS Safety Report 5653374-8 (Version None)
Quarter: 2008Q1

REPORT INFORMATION
  Report Type: 
  Country: None (occurrence: None)
  Receive Date: 20080306
  Receipt Date: 20080220
  Transmission Date: 20080703
  Serious: Yes (Death, Other)
  Sender: FDA-Public Use
  Company Number: NL-ROCHE-548539

PATIENT
  Age: 77 Year
  Sex: Female
  Weight: 63 kg

DRUGS (2)
  1. XELODA [Suspect]
     Dosage: DOSE REPORTED AS 2X1000MG/M2
     Route: 048
     Dates: start: 20080114, end: 20080123
  2. OXALIPLATIN [Concomitant]
     Dates: start: 20080114, end: 20080114

REACTIONS (4)
  - DEATH [None]
  - DIARRHOEA [None]
  - METABOLIC DISORDER [None]
  - STOMATITIS [None]
